FAERS Safety Report 10149653 (Version 2)
Quarter: 2014Q2

REPORT INFORMATION
  Report Type: Spontaneous
  Country: US (occurrence: US)
  Receive Date: 20140502
  Receipt Date: 20140502
  Transmission Date: 20141212
  Serious: Yes (Death)
  Sender: FDA-Public Use
  Company Number: PHEH2000US01442

PATIENT
  Age: 78 Year
  Sex: Female

DRUGS (8)
  1. COMTAN [Suspect]
     Indication: PARKINSON^S DISEASE
     Dosage: UNK UKN, DAILY
     Route: 048
     Dates: start: 20000125, end: 20000209
  2. SINEMET-CR [Concomitant]
     Indication: PARKINSON^S DISEASE
     Dosage: 100 MG, TID
     Route: 048
  3. SINEMET-CR [Concomitant]
     Dosage: DOSE INCREASED
  4. TRANXENE [Concomitant]
     Dosage: 11.25..22.5 (3-6X/DAY)
     Route: 048
  5. MIRAPEX [Concomitant]
     Dosage: 0.75 MG, (3X/DAY)
     Route: 048
  6. SYNTHROID [Concomitant]
     Dosage: UNK UKN, DAILY
     Route: 048
  7. TYLENOL PM [Concomitant]
     Dosage: UNK UKN, UNK
     Route: 048
  8. SONATA//ZALEPLON [Concomitant]
     Indication: INSOMNIA
     Dosage: UNK UKN, PRN
     Route: 048
     Dates: start: 20000203

REACTIONS (7)
  - Myocardial infarction [Fatal]
  - Gait disturbance [Fatal]
  - Fall [Fatal]
  - Dyskinesia [Fatal]
  - Musculoskeletal stiffness [Fatal]
  - Dysgeusia [Unknown]
  - Drooling [Unknown]
